FAERS Safety Report 7306233-9 (Version None)
Quarter: 2011Q1

REPORT INFORMATION
  Report Type: 
  Country: None (occurrence: None)
  Receive Date: 20110209
  Receipt Date: 20110203
  Transmission Date: 20110831
  Serious: Yes (Disabling)
  Sender: FDA-Public Use
  Company Number: OSCN-PR-1102L-0073

PATIENT
  Age: 80 Year
  Sex: Male

DRUGS (1)
  1. OMNISCAN [Suspect]
     Indication: SOFT TISSUE NECROSIS
     Dosage: 80 ML, SINGLE DOSE, I.A.

REACTIONS (3)
  - OFF LABEL USE [None]
  - HAEMODIALYSIS [None]
  - RENAL FAILURE ACUTE [None]
